FAERS Safety Report 12872827 (Version 2)
Quarter: 2016Q4

REPORT INFORMATION
  Report Type: Report from Study
  Country: CA (occurrence: CA)
  Receive Date: 20161021
  Receipt Date: 20161220
  Transmission Date: 20170207
  Serious: Yes (Other)
  Sender: FDA-Public Use
  Company Number: CA-HLSUS-2016-CA-000547

PATIENT
  Age: 55 Year
  Sex: Female
  Weight: 66.8 kg

DRUGS (11)
  1. CLOZARIL [Suspect]
     Active Substance: CLOZAPINE
     Indication: SCHIZOPHRENIA
     Dosage: 25 MG TWICE A DAY
     Route: 048
     Dates: start: 20161006, end: 20161018
  2. CELEBREX [Concomitant]
     Active Substance: CELECOXIB
     Dosage: 200 MG ONCE DAILY DURING LUNCH
     Route: 048
     Dates: start: 20160806
  3. NEURONTIN [Concomitant]
     Active Substance: GABAPENTIN
     Dosage: 400 MG TWICE A DAY
     Route: 048
     Dates: start: 20160707
  4. TOPAMAX [Concomitant]
     Active Substance: TOPIRAMATE
     Dosage: 25 MG THREE TIMES A DAY
     Route: 048
     Dates: start: 20160707
  5. COLACE [Concomitant]
     Active Substance: DOCUSATE SODIUM
     Dosage: 100 MG TWICE A DAY
     Route: 048
     Dates: start: 20160715
  6. COGENTIN [Concomitant]
     Active Substance: BENZTROPINE MESYLATE
     Dosage: 1 MG TWICE DAILY
     Route: 048
     Dates: start: 20160731
  7. BENADRYL [Concomitant]
     Active Substance: DIPHENHYDRAMINE HYDROCHLORIDE
     Dosage: 2 CAP AT A TIME (50 MG)
     Route: 048
     Dates: start: 20160911
  8. FLEXERIL [Concomitant]
     Active Substance: CYCLOBENZAPRINE HYDROCHLORIDE
     Dosage: 10 MG DAILY IF NEEDED
     Route: 048
     Dates: start: 20160707
  9. SENOKOT [Concomitant]
     Active Substance: SENNOSIDES
     Dosage: TAKE TWO DOSES AT EVERY NIGHT
     Dates: start: 20160804
  10. LATUDA [Concomitant]
     Active Substance: LURASIDONE HYDROCHLORIDE
     Dosage: 80 MG ONCE DAILY AT SUPPER
     Dates: start: 20160922
  11. CORTATE [Concomitant]
     Active Substance: HYDROCORTISONE
     Dosage: APPLY TO BACK OF NECK TWICE
     Route: 061
     Dates: start: 20160914

REACTIONS (2)
  - Neurogenic bladder [Unknown]
  - Urinary retention [Unknown]

NARRATIVE: CASE EVENT DATE: 20161012
